FAERS Safety Report 7293309-8 (Version None)
Quarter: 2011Q1

REPORT INFORMATION
  Report Type: 
  Country: None (occurrence: None)
  Receive Date: 20110215
  Receipt Date: 20110203
  Transmission Date: 20110831
  Serious: Yes (Other)
  Sender: FDA-Public Use
  Company Number: JP-ROCHE-734830

PATIENT
  Sex: Male
  Weight: 57 kg

DRUGS (9)
  1. COPEGUS [Suspect]
     Dosage: DOSE DECREASED
     Route: 048
     Dates: start: 20101130, end: 20101206
  2. PEGASYS [Suspect]
     Dosage: DOSE DECREASED,
     Route: 058
     Dates: start: 20101019, end: 20101130
  3. LOXONIN [Concomitant]
     Route: 048
     Dates: start: 20100128, end: 20101130
  4. ALLEGRA [Concomitant]
     Route: 048
     Dates: start: 20100216
  5. COPEGUS [Suspect]
     Indication: CHRONIC HEPATITIS
     Route: 048
     Dates: start: 20100121, end: 20101129
  6. TAKEPRON [Concomitant]
     Route: 048
     Dates: start: 20100126
  7. LAC-B [Concomitant]
     Route: 048
     Dates: start: 20100126
  8. PEGASYS [Suspect]
     Indication: HEPATITIS C
     Route: 058
     Dates: start: 20100112, end: 20101012
  9. REBAMIPIDE [Concomitant]
     Route: 048
     Dates: start: 20100420, end: 20101220

REACTIONS (1)
  - CHOLESTASIS [None]
